FAERS Safety Report 21762437 (Version 1)
Quarter: 2022Q4

REPORT INFORMATION
  Report Type: Report from Study
  Country: CA (occurrence: CA)
  Receive Date: 20221221
  Receipt Date: 20221221
  Transmission Date: 20230112
  Serious: Yes (Other)
  Sender: FDA-Public Use
  Company Number: CA-ABBVIE-4180424

PATIENT
  Age: 67 Year
  Sex: Female

DRUGS (1)
  1. HUMIRA [Suspect]
     Active Substance: ADALIMUMAB
     Indication: Crohn^s disease
     Route: 058
     Dates: start: 20210711, end: 20221127

REACTIONS (3)
  - Stoma complication [Recovered/Resolved]
  - Stoma site haemorrhage [Recovered/Resolved]
  - Stoma closure [Unknown]

NARRATIVE: CASE EVENT DATE: 20221001
